FAERS Safety Report 17113000 (Version 2)
Quarter: 2019Q4

REPORT INFORMATION
  Report Type: Spontaneous
  Country: JP (occurrence: JP)
  Receive Date: 20191204
  Receipt Date: 20191226
  Transmission Date: 20200122
  Serious: Yes (Hospitalization)
  Sender: FDA-Public Use
  Company Number: JP-BAUSCH-BL-2019-063778

PATIENT
  Sex: Male

DRUGS (1)
  1. LUMICEF [Suspect]
     Active Substance: BRODALUMAB
     Indication: PRODUCT USED FOR UNKNOWN INDICATION
     Dosage: SYRINGE
     Route: 058

REACTIONS (2)
  - Fracture [Not Recovered/Not Resolved]
  - Fall [Not Recovered/Not Resolved]
